FAERS Safety Report 7068524-9 (Version None)
Quarter: 2010Q4

REPORT INFORMATION
  Report Type: 
  Country: None (occurrence: None)
  Receive Date: 20101027
  Receipt Date: 20101027
  Transmission Date: 20110411
  Serious: Yes (Other)
  Sender: FDA-Public Use
  Company Number: None

PATIENT
  Age: 46 Year
  Sex: Female
  Weight: 81.6475 kg

DRUGS (1)
  1. EFFEXOR [Suspect]
     Indication: DEPRESSION
     Dosage: VARIED FROM BEGING 37.5 TO 150 1 DAILY PO
     Route: 048
     Dates: start: 20050404, end: 20101018

REACTIONS (6)
  - ANGER [None]
  - DISTURBANCE IN ATTENTION [None]
  - DRUG WITHDRAWAL SYNDROME [None]
  - FEAR [None]
  - PARAESTHESIA [None]
  - TEARFULNESS [None]
